FAERS Safety Report 7718656-4 (Version None)
Quarter: 2011Q3

REPORT INFORMATION
  Report Type: 
  Country: None (occurrence: None)
  Receive Date: 20110830
  Receipt Date: 20110816
  Transmission Date: 20111222
  Serious: Yes (Death)
  Sender: FDA-Public Use
  Company Number: HK-SANOFI-AVENTIS-2011SA052346

PATIENT
  Age: 37 Year
  Sex: Female

DRUGS (2)
  1. HYDROXYCHLOROQUINE SULFATE [Suspect]
     Indication: SUICIDE ATTEMPT
     Route: 048
     Dates: start: 20090801, end: 20090801
  2. CHLOROQUINE PHOSPHATE [Suspect]
     Indication: SUICIDE ATTEMPT
     Dosage: 30 TABLETS
     Route: 048
     Dates: start: 20090801, end: 20090801

REACTIONS (7)
  - VENTRICULAR FIBRILLATION [None]
  - SINUS TACHYCARDIA [None]
  - HYPOKALAEMIA [None]
  - CARDIAC ARREST [None]
  - HYPOTENSION [None]
  - TORSADE DE POINTES [None]
  - INTENTIONAL OVERDOSE [None]
